FAERS Safety Report 20890825 (Version 1)
Quarter: 2022Q2

REPORT INFORMATION
  Report Type: Spontaneous
  Country: JP (occurrence: JP)
  Receive Date: 20220530
  Receipt Date: 20220530
  Transmission Date: 20220721
  Serious: Yes (Hospitalization)
  Sender: FDA-Public Use
  Company Number: JP-GSKNCCC-Case-01499011_AE-58403

PATIENT

DRUGS (1)
  1. SOTROVIMAB [Suspect]
     Active Substance: SOTROVIMAB
     Indication: COVID-19
     Dosage: 500 MG IN 1 VIAL (8 ML), MIXED WITH 42 ML OF NORMAL SALINE, WAS ADMINISTERED OVER 30 MINUTES
     Route: 041
     Dates: start: 20220524, end: 20220524

REACTIONS (3)
  - Hospitalisation [Unknown]
  - Erythema [Recovering/Resolving]
  - Pruritus [Recovering/Resolving]

NARRATIVE: CASE EVENT DATE: 20220524
